FAERS Safety Report 20554411 (Version 1)
Quarter: 2022Q1

REPORT INFORMATION
  Report Type: Spontaneous
  Country: DE (occurrence: DE)
  Receive Date: 20220304
  Receipt Date: 20220304
  Transmission Date: 20220424
  Serious: Yes (Hospitalization)
  Sender: FDA-Public Use
  Company Number: DE-NOVARTISPH-NVSC2022DE050900

PATIENT
  Age: 80 Year
  Sex: Female
  Weight: 60 kg

DRUGS (5)
  1. DEXAMETHASONE [Suspect]
     Active Substance: DEXAMETHASONE
     Indication: Plasma cell myeloma
     Dosage: 4 MG (DATE OF THE LAST DOSAGE BEFORE EVENT ONSET: 03 NOV 2021. LAST DOSAGE BEFORE EVENT ONSET: 4 MG)
     Route: 065
     Dates: start: 20210127
  2. DARATUMUMAB [Suspect]
     Active Substance: DARATUMUMAB
     Indication: Plasma cell myeloma
     Dosage: 960 MG (DATE OF THE LAST DOSAGE BEFORE EVENT ONSET: 03/NOV/2021.LAST DOSAGE BEFORE EVENT ONSET: 848
     Route: 042
     Dates: start: 20210127
  3. DIMETHINDENE [Concomitant]
     Active Substance: DIMETHINDENE
     Indication: Product used for unknown indication
     Dosage: 4 MG
     Route: 042
     Dates: start: 20210127, end: 20211103
  4. ACETAMINOPHEN [Concomitant]
     Active Substance: ACETAMINOPHEN
     Indication: Product used for unknown indication
     Dosage: 1000 MG
     Route: 048
     Dates: start: 20210121, end: 20211103
  5. PREDNISOLONE [Concomitant]
     Active Substance: PREDNISOLONE
     Indication: Product used for unknown indication
     Dosage: 100 MG
     Route: 042
     Dates: start: 20210127, end: 20211103

REACTIONS (1)
  - Pneumonia [Recovering/Resolving]

NARRATIVE: CASE EVENT DATE: 20211110
